FAERS Safety Report 6194960-9 (Version None)
Quarter: 2009Q2

REPORT INFORMATION
  Report Type: 
  Country: None (occurrence: None)
  Receive Date: 20090515
  Receipt Date: 20090515
  Transmission Date: 20091009
  Serious: Yes (Hospitalization)
  Sender: FDA-Public Use
  Company Number: None

PATIENT
  Age: 28 Year
  Sex: Female
  Weight: 49.8957 kg

DRUGS (2)
  1. SERTRALINE HCL [Suspect]
     Indication: DEPRESSION
     Dosage: 2 TABLETS ONCE A DAY PO
     Route: 048
     Dates: start: 20080701, end: 20090201
  2. SERTRALINE HCL [Suspect]
     Indication: POST-TRAUMATIC STRESS DISORDER
     Dosage: 2 TABLETS ONCE A DAY PO
     Route: 048
     Dates: start: 20080701, end: 20090201

REACTIONS (5)
  - FEAR [None]
  - MUSCLE TWITCHING [None]
  - NONSPECIFIC REACTION [None]
  - SPEECH DISORDER [None]
  - TREMOR [None]
